FAERS Safety Report 8030183-6 (Version None)
Quarter: 2012Q1

REPORT INFORMATION
  Report Type: 
  Country: None (occurrence: None)
  Receive Date: 20120109
  Receipt Date: 20120104
  Transmission Date: 20120608
  Serious: Yes (Death, Hospitalization)
  Sender: FDA-Public Use
  Company Number: DE-SANOFI-AVENTIS-2011SA026552

PATIENT
  Sex: Female
  Weight: 58 kg

DRUGS (22)
  1. OXALIPLATIN [Suspect]
     Indication: RECTAL CANCER
     Dosage: LAST DOSE PRIOR TO SAE: 21 APR 2011
     Route: 042
     Dates: start: 20110322
  2. OXALIPLATIN [Suspect]
     Route: 042
     Dates: end: 20110421
  3. CAPECITABINE [Suspect]
     Indication: RECTAL CANCER
     Dosage: LAST DOSE PRIOR TO SAE: 28OCT2011
     Route: 048
     Dates: start: 20110321, end: 20111123
  4. METOPROLOL SUCCINATE [Concomitant]
     Route: 048
  5. LIPID EMULSION [Concomitant]
     Indication: MALNUTRITION
     Dosage: 1100 KCAL
     Route: 042
     Dates: start: 20110428, end: 20110513
  6. LOPERAMIDE [Concomitant]
     Route: 048
     Dates: start: 20110404, end: 20110427
  7. LOPERAMIDE [Concomitant]
     Dates: end: 20110514
  8. POTASSIUM CHLORIDE [Concomitant]
     Route: 042
     Dates: start: 20111102, end: 20111220
  9. LOPERAMIDE [Concomitant]
     Route: 048
     Dates: start: 20111108, end: 20111218
  10. CETIRIZINE HCL [Concomitant]
     Route: 048
     Dates: start: 20111109, end: 20111218
  11. JONOSTERIL [Concomitant]
     Indication: MALNUTRITION
     Route: 042
     Dates: start: 20111101, end: 20111221
  12. SMECTITE [Concomitant]
     Dosage: DOSE : 797 MG AND 87 MG
     Route: 048
     Dates: start: 20110503, end: 20110504
  13. ADDEL N ^BAXTER^ [Concomitant]
     Indication: MALNUTRITION
     Route: 042
     Dates: start: 20110428, end: 20110513
  14. MUTAFLOR [Concomitant]
     Indication: GASTROINTESTINAL INFLAMMATION
     Dosage: 500 MILLION BACTERIA OF E.CHOLI
     Route: 048
     Dates: start: 20110429, end: 20110504
  15. KABIVEN [Concomitant]
     Indication: MALNUTRITION
     Route: 042
     Dates: start: 20111101, end: 20111213
  16. MULTI-VITAMINS [Concomitant]
     Indication: MALNUTRITION
     Route: 042
     Dates: start: 20110428, end: 20110513
  17. SULFASALAZINE [Concomitant]
     Indication: ENTERITIS
     Route: 048
     Dates: start: 20110418
  18. FAT EMULSIONS [Concomitant]
     Route: 042
  19. THERAPEUTIC RADIOPHARMACEUTICALS [Suspect]
     Indication: RECTAL CANCER
     Dosage: 28 FRACTIONS OF 1.8 GY, TOTAL DOSE 50.4 GY
     Route: 065
     Dates: start: 20110321, end: 20110429
  20. MUTAFLOR [Concomitant]
     Dosage: 500 MILLION BACTERIA OF E.CHOLI
     Route: 048
     Dates: start: 20110511, end: 20110516
  21. SMECTITE [Concomitant]
     Route: 048
     Dates: start: 20110418, end: 20110422
  22. ENOXAPARIN SODIUM [Concomitant]

REACTIONS (16)
  - GENERAL PHYSICAL HEALTH DETERIORATION [None]
  - HAEMORRHAGIC EROSIVE GASTRITIS [None]
  - STAPHYLOCOCCAL INFECTION [None]
  - DIARRHOEA [None]
  - ABDOMINAL WALL ABSCESS [None]
  - MALAISE [None]
  - DECREASED APPETITE [None]
  - PETECHIAE [None]
  - COLITIS [None]
  - DEHYDRATION [None]
  - GASTROOESOPHAGEAL REFLUX DISEASE [None]
  - VERTIGO [None]
  - ABDOMINAL PAIN [None]
  - PANCYTOPENIA [None]
  - VOMITING [None]
  - PNEUMONIA [None]
